FAERS Safety Report 10649703 (Version 2)
Quarter: 2014Q4

REPORT INFORMATION
  Report Type: Spontaneous
  Country: GB (occurrence: GB)
  Receive Date: 20141212
  Receipt Date: 20141222
  Transmission Date: 20150529
  Serious: Yes (Other)
  Sender: FDA-Public Use
  Company Number: GB-BAXTER-2014BAX071949

PATIENT
  Sex: Male

DRUGS (2)
  1. TINZAPARIN [Suspect]
     Active Substance: TINZAPARIN
     Indication: ANTICOAGULANT THERAPY
     Route: 065
  2. SODIUM CHLORIDE INTRAVENOUS INFUSION BP 0.9%W/V [Suspect]
     Active Substance: SODIUM CHLORIDE
     Indication: PRODUCT USED FOR UNKNOWN INDICATION
     Route: 065

REACTIONS (3)
  - Haemorrhage [Unknown]
  - Product container issue [Recovered/Resolved]
  - Therapy cessation [Recovered/Resolved]
